FAERS Safety Report 7968362-6 (Version None)
Quarter: 2011Q4

REPORT INFORMATION
  Report Type: 
  Country: None (occurrence: None)
  Receive Date: 20111209
  Receipt Date: 20111205
  Transmission Date: 20120403
  Serious: Yes (Death)
  Sender: FDA-Public Use
  Company Number: US-CELGENEUS-163-21880-11110560

PATIENT
  Sex: Female
  Weight: 46.308 kg

DRUGS (13)
  1. ACYCLOVIR [Concomitant]
     Route: 065
  2. CALCIUM WITH VITAMIN D [Concomitant]
     Route: 065
  3. AMLODIPINE [Concomitant]
     Dosage: 10 MILLIGRAM
     Route: 065
  4. FAMOTIDINE [Concomitant]
     Dosage: 20 MILLIGRAM
     Route: 065
  5. TAMOXIFEN CITRATE [Concomitant]
     Dosage: 20 MILLIGRAM
     Route: 065
  6. ASPIRIN [Concomitant]
     Route: 065
  7. REVLIMID [Suspect]
     Dosage: 15 MILLIGRAM
     Route: 048
     Dates: start: 20110601, end: 20111010
  8. ASMANEX TWISTHALE [Concomitant]
     Dosage: 220 MICROGRAM
     Route: 065
  9. CITALOPRAM [Concomitant]
     Dosage: 20 MILLIGRAM
     Route: 065
  10. PRAVASTATIN [Concomitant]
     Dosage: 40 MILLIGRAM
     Route: 065
  11. SPIRIVA [Concomitant]
     Dosage: 18 MICROGRAM
     Route: 065
  12. REVLIMID [Suspect]
     Indication: MULTIPLE MYELOMA
     Dosage: 10 MILLIGRAM
     Route: 048
     Dates: start: 20110101
  13. DEXAMETHASONE [Concomitant]
     Dosage: 4 MILLIGRAM
     Route: 065

REACTIONS (1)
  - CARDIAC ARREST [None]
